FAERS Safety Report 4681996-X (Version None)
Quarter: 2005Q2

REPORT INFORMATION
  Report Type: 
  Country: None (occurrence: None)
  Receive Date: 20050526
  Receipt Date: 20050222
  Transmission Date: 20051028
  Serious: Yes (Death)
  Sender: FDA-Public Use
  Company Number: US-JNJFOC-20041106700

PATIENT
  Age: 57 Year
  Sex: Male
  Weight: 76.6579 kg

DRUGS (6)
  1. RISPERDAL [Suspect]
     Indication: SCHIZOPHRENIA, PARANOID TYPE
     Dosage: 25 MG, 1 IN 2 WEEK, INTRAMUSCULAR
     Route: 030
     Dates: start: 20040806
  2. RISPERDAL [Suspect]
     Indication: SCHIZOPHRENIA
  3. BENZTROPINE MESYLATE [Concomitant]
  4. METOPROLOL TARTRATE [Concomitant]
  5. HYDROCHLOROTHIAZIDE [Concomitant]
  6. FLUOXETINE [Concomitant]

REACTIONS (1)
  - COMPLETED SUICIDE [None]
